FAERS Safety Report 5642476-8 (Version None)
Quarter: 2008Q1

REPORT INFORMATION
  Report Type: 
  Country: None (occurrence: None)
  Receive Date: 20080226
  Receipt Date: 20080212
  Transmission Date: 20080703
  Serious: Yes (Hospitalization)
  Sender: FDA-Public Use
  Company Number: FABR-1000085

PATIENT
  Age: 43 Year
  Sex: Male
  Weight: 70 kg

DRUGS (13)
  1. FABRAZYME [Suspect]
     Indication: FABRY'S DISEASE
     Dosage: 70 MG, INTRAVENOUS
     Route: 042
  2. CELLCEPT [Concomitant]
  3. PROGRAF [Concomitant]
  4. BISOPROLOL (HYDROCHOROTHIAZIDE) [Concomitant]
  5. DECORTIN (PREDNISONE) [Concomitant]
  6. CANDESARTAN CILEXETIL [Concomitant]
  7. TRIMIPRAMINE MALEATE [Concomitant]
  8. LASIX [Concomitant]
  9. TAXILAN (PERAZINE DIMALONATE) [Concomitant]
  10. CARMEN (LERCANIDIPINE) [Concomitant]
  11. PCM (PARACETAMOL) [Concomitant]
  12. NOCTAMID (LORMETAZEPAM) [Concomitant]
  13. VALORON (CLONIXIN LYSINATE) [Concomitant]

REACTIONS (7)
  - CHILLS [None]
  - DRUG INTOLERANCE [None]
  - HOT FLUSH [None]
  - INFUSION RELATED REACTION [None]
  - MUSCULOSKELETAL PAIN [None]
  - OXYGEN SATURATION DECREASED [None]
  - VOMITING PROJECTILE [None]
